FAERS Safety Report 12996496 (Version 1)
Quarter: 2016Q4

REPORT INFORMATION
  Report Type: Spontaneous
  Country: US (occurrence: US)
  Receive Date: 20161204
  Receipt Date: 20161204
  Transmission Date: 20170207
  Serious: Yes (Death)
  Sender: FDA-Public Use
  Company Number: US-BEH-2016075699

PATIENT
  Age: 67 Year
  Sex: Male
  Weight: 78.5 kg

DRUGS (23)
  1. CARVEDILOL. [Concomitant]
     Active Substance: CARVEDILOL
  2. ECOTRIN [Concomitant]
     Active Substance: ASPIRIN
  3. ALBUTEROL                          /00139501/ [Concomitant]
     Active Substance: ALBUTEROL
  4. LANSOPRAZOLE. [Concomitant]
     Active Substance: LANSOPRAZOLE
  5. GABITRIL [Concomitant]
     Active Substance: TIAGABINE HYDROCHLORIDE
  6. BONIVA [Concomitant]
     Active Substance: IBANDRONATE SODIUM
  7. PNEUMOVAX 23 [Concomitant]
     Active Substance: PNEUMOCOCCAL VACCINE, POLYVALENT 23
  8. EPIPEN [Concomitant]
     Active Substance: EPINEPHRINE
  9. LMX                                /00033401/ [Concomitant]
  10. HYDROCODONE                        /00060002/ [Concomitant]
     Active Substance: HYDROCODONE
  11. ZOSTAVAX [Concomitant]
     Active Substance: VARICELLA-ZOSTER VIRUS STRAIN OKA/MERCK LIVE ANTIGEN
  12. NITROLINGUAL [Concomitant]
     Active Substance: NITROGLYCERIN
  13. CLARITIN [Concomitant]
     Active Substance: LORATADINE
  14. SINGULAIR [Concomitant]
     Active Substance: MONTELUKAST SODIUM
  15. LAMICTAL [Concomitant]
     Active Substance: LAMOTRIGINE
  16. TAMSULOSIN [Concomitant]
     Active Substance: TAMSULOSIN
  17. FOLIC ACID. [Concomitant]
     Active Substance: FOLIC ACID
  18. FLUDROCORTISONE [Concomitant]
     Active Substance: FLUDROCORTISONE
  19. LEXAPRO [Concomitant]
     Active Substance: ESCITALOPRAM OXALATE
  20. HIZENTRA [Suspect]
     Active Substance: HUMAN IMMUNOGLOBULIN G
     Indication: IMMUNODEFICIENCY
     Dosage: UNK
     Route: 058
     Dates: start: 20110502
  21. MAGNESIUM [Concomitant]
     Active Substance: MAGNESIUM
  22. VITAMIN D2 [Concomitant]
     Active Substance: ERGOCALCIFEROL
  23. LIPITOR [Concomitant]
     Active Substance: ATORVASTATIN CALCIUM

REACTIONS (1)
  - Death [Fatal]

NARRATIVE: CASE EVENT DATE: 20161122
